FAERS Safety Report 14069048 (Version 3)
Quarter: 2018Q1

REPORT INFORMATION
  Report Type: Report from Study
  Country: US (occurrence: BR)
  Receive Date: 20171010
  Receipt Date: 20180105
  Transmission Date: 20180508
  Serious: Yes (Life-Threatening)
  Sender: FDA-Public Use
  Company Number: US-SUNOVION-2017SUN004362

PATIENT
  Sex: Female
  Weight: 90 kg

DRUGS (7)
  1. METFORMIN [Concomitant]
     Active Substance: METFORMIN HYDROCHLORIDE
     Dosage: 500 MG, UNK
  2. BROMOPRIDE [Concomitant]
     Active Substance: BROMOPRIDE
     Dosage: 10 MG, UNK
  3. INDACATEROL AND GLYCOPYRROLATE [Suspect]
     Active Substance: GLYCOPYRROLATE\INDACATEROL MALEATE
     Indication: PULMONARY FIBROSIS
     Dosage: 1 DF (GLYCOPYRRONIUM BROMIDE 50 / INDACATEROL 110), BID
     Route: 055
  4. INDACATEROL AND GLYCOPYRROLATE [Suspect]
     Active Substance: GLYCOPYRROLATE\INDACATEROL MALEATE
     Dosage: 1 DF (GLYCOPYRRONIUM BROMIDE 50 / INDACATEROL 110), QD
     Route: 055
  5. OMEPRAZOLE. [Concomitant]
     Active Substance: OMEPRAZOLE
     Dosage: 20 MG, UNK
  6. ALENIA [Concomitant]
     Active Substance: BUDESONIDE\FORMOTEROL FUMARATE
     Dosage: UNK
  7. DIAMICRON [Concomitant]
     Active Substance: GLICLAZIDE
     Dosage: 30 MG, UNK

REACTIONS (15)
  - Asthenia [Recovered/Resolved]
  - Nervousness [Unknown]
  - Product use in unapproved indication [Unknown]
  - Cardiomegaly [Unknown]
  - Drug ineffective [Unknown]
  - Fear [Unknown]
  - Cough [Unknown]
  - Inappropriate schedule of drug administration [Unknown]
  - Feeling abnormal [Unknown]
  - Weight increased [Unknown]
  - Epistaxis [Recovered/Resolved]
  - Fatigue [Unknown]
  - Haemoptysis [Unknown]
  - Environmental exposure [Unknown]
  - Dyspnoea [Recovering/Resolving]
